FAERS Safety Report 9369572 (Version 1)
Quarter: 2013Q2

REPORT INFORMATION
  Report Type: Spontaneous
  Country: US (occurrence: US)
  Receive Date: 20130626
  Receipt Date: 20130626
  Transmission Date: 20140414
  Serious: No
  Sender: FDA-Public Use
  Company Number: US-PFIZER INC-2013157447

PATIENT
  Age: 50 Year
  Sex: Female

DRUGS (10)
  1. EFFEXOR XR [Suspect]
     Dosage: 37.5 MG, 1X/DAY
     Route: 048
  2. EFFEXOR XR [Suspect]
     Dosage: 150 MG, 1X/DAY (QHS)
     Route: 048
  3. LYRICA [Suspect]
     Dosage: 75 MG, 1X/DAY
     Route: 048
  4. LYRICA [Suspect]
     Dosage: UNK
     Route: 048
  5. VISTARIL [Suspect]
     Dosage: 25 MG, 3X/DAY (1 CAPSULE TID)
     Route: 048
  6. VISTARIL [Suspect]
     Dosage: 25 MG, AS NEEDED (1 TID PRN)
     Route: 048
  7. XANAX [Suspect]
     Dosage: 0.5 MG, AS NEEDED (1 OR 2 BID PRN)
     Route: 048
  8. LIDODERM PATCH [Concomitant]
     Dosage: UNK
  9. DURAGESIC [Concomitant]
     Dosage: UNK
     Route: 062
  10. ESTRACE [Concomitant]
     Dosage: UNK

REACTIONS (2)
  - Rash [Unknown]
  - Blister [Unknown]
